FAERS Safety Report 19496109 (Version 1)
Quarter: 2021Q3

REPORT INFORMATION
  Report Type: Spontaneous
  Country: US (occurrence: US)
  Receive Date: 20210706
  Receipt Date: 20210706
  Transmission Date: 20211014
  Serious: No
  Sender: FDA-Public Use
  Company Number: US-BAYER-2021-169468

PATIENT
  Age: 18 Year
  Sex: Female

DRUGS (1)
  1. MIRALAX [Suspect]
     Active Substance: POLYETHYLENE GLYCOL 3350
     Indication: COLONOSCOPY
     Dosage: MIX 238G TO 64OZ OF GATORADE DOSE
     Route: 048

REACTIONS (2)
  - Extra dose administered [Unknown]
  - Off label use [Unknown]
